FAERS Safety Report 13251596 (Version 1)
Quarter: 2017Q1

REPORT INFORMATION
  Report Type: Report from Study
  Country: US (occurrence: US)
  Receive Date: 20170220
  Receipt Date: 20170220
  Transmission Date: 20170428
  Serious: Yes (Death, Hospitalization)
  Sender: FDA-Public Use
  Company Number: US-BAYER-2017-016458

PATIENT
  Age: 80 Year
  Sex: Female
  Weight: 54.42 kg

DRUGS (7)
  1. OFEV [Concomitant]
     Active Substance: NINTEDANIB
     Dosage: 150 MG, BID
  2. AMLODIPINE [Concomitant]
     Active Substance: AMLODIPINE BESYLATE
     Dosage: UNK
  3. ADEMPAS [Suspect]
     Active Substance: RIOCIGUAT
     Indication: PULMONARY HYPERTENSION
     Dosage: 2 MG, TID
     Route: 048
  4. ADEMPAS [Suspect]
     Active Substance: RIOCIGUAT
     Indication: PULMONARY HYPERTENSION
     Dosage: 2.5 MG, TID
     Route: 048
  5. ADEMPAS [Suspect]
     Active Substance: RIOCIGUAT
     Indication: PULMONARY HYPERTENSION
     Dosage: UNK
     Dates: start: 20161118
  6. OFEV [Concomitant]
     Active Substance: NINTEDANIB
     Dosage: 100 MG, BID
  7. SILDENAFIL CITRATE. [Concomitant]
     Active Substance: SILDENAFIL CITRATE
     Dosage: UNK

REACTIONS (8)
  - Dyspnoea [Unknown]
  - Sputum discoloured [Unknown]
  - Diarrhoea [Unknown]
  - Gastrointestinal disorder [Unknown]
  - Death [Fatal]
  - Fall [Unknown]
  - Productive cough [Unknown]
  - Constipation [Unknown]

NARRATIVE: CASE EVENT DATE: 20170123
